FAERS Safety Report 16302173 (Version 1)
Quarter: 2019Q2

REPORT INFORMATION
  Report Type: Spontaneous
  Country: US (occurrence: US)
  Receive Date: 20190408
  Receipt Date: 20190408
  Transmission Date: 20190711
  Serious: No
  Sender: FDA-Public Use
  Company Number: None

PATIENT
  Age: 59 Year
  Sex: Female

DRUGS (4)
  1. REPATHA [Suspect]
     Active Substance: EVOLOCUMAB
     Indication: HYPERLIPIDAEMIA
     Dosage: AS DIRECTED
     Route: 058
     Dates: start: 201902
  2. REPATHA [Suspect]
     Active Substance: EVOLOCUMAB
     Indication: PALPITATIONS
     Dosage: AS DIRECTED
     Route: 058
     Dates: start: 201902
  3. REPATHA [Suspect]
     Active Substance: EVOLOCUMAB
     Indication: NICOTINE DEPENDENCE
     Dosage: AS DIRECTED
     Route: 058
     Dates: start: 201902
  4. REPATHA [Suspect]
     Active Substance: EVOLOCUMAB
     Indication: HYPERTENSIVE HEART DISEASE
     Dosage: AS DIRECTED
     Route: 058
     Dates: start: 201902

REACTIONS (1)
  - Nasopharyngitis [None]
